FAERS Safety Report 8282060-3 (Version None)
Quarter: 2012Q2

REPORT INFORMATION
  Report Type: 
  Country: None (occurrence: None)
  Receive Date: 20120410
  Receipt Date: 20120306
  Transmission Date: 20120825
  Serious: Yes (Death)
  Sender: FDA-Public Use
  Company Number: US-REGULIS-0037

PATIENT
  Age: 6 Year
  Sex: Female

DRUGS (8)
  1. FOSCARNET [Suspect]
     Indication: ENCEPHALITIS CYTOMEGALOVIRUS
     Dosage: 90, MG/KG MILLIGRAM(S)/KILOGRAM,  1, 2, WEEKS
  2. GAMMA GLOBULINE [Concomitant]
  3. CIDOFOVIR - CONCENTRATE FOR SOLUTION FOR INFUSION / CIDOFOVIR [Concomitant]
  4. PROBENECID - TABLET: ORAL / PROBENECID [Concomitant]
  5. HUMAN CYTOMEGALOVIRUS IMMUNOGLOBULINS - SOLUTION FOR INFUSION / GRANUL [Concomitant]
  6. FOSCARNET [Suspect]
     Indication: ENCEPHALITIS CYTOMEGALOVIRUS
  7. FOSCARNET [Suspect]
     Indication: ENCEPHALITIS CYTOMEGALOVIRUS
     Dosage: 60, MG/KG MILLIGRAM(S)/KILOGRAM, 1, 8, HOURS
  8. GANCICLOVIR [Concomitant]

REACTIONS (20)
  - CYTOMEGALOVIRUS VIRAEMIA [None]
  - PNEUMONIA [None]
  - HYPERTENSION [None]
  - CIRCULATORY COLLAPSE [None]
  - DISEASE RECURRENCE [None]
  - GASTROINTESTINAL HAEMORRHAGE [None]
  - ABSCESS FUNGAL [None]
  - HYDROCEPHALUS [None]
  - GRAND MAL CONVULSION [None]
  - ACUTE SINUSITIS [None]
  - CREATININE RENAL CLEARANCE DECREASED [None]
  - HEADACHE [None]
  - ABDOMINAL DISTENSION [None]
  - PANCYTOPENIA [None]
  - RENAL ABSCESS [None]
  - MULTI-ORGAN FAILURE [None]
  - IMMUNOSUPPRESSION [None]
  - WHITE BLOOD CELL COUNT DECREASED [None]
  - PYREXIA [None]
  - NECROSIS [None]
